FAERS Safety Report 17794274 (Version 1)
Quarter: 2020Q2

REPORT INFORMATION
  Report Type: Spontaneous
  Country: DK (occurrence: DK)
  Receive Date: 20200516
  Receipt Date: 20200516
  Transmission Date: 20200714
  Serious: Yes (Other)
  Sender: FDA-Public Use
  Company Number: DK-TEVA-2020-DK-1234783

PATIENT
  Age: 28 Year
  Sex: Male

DRUGS (14)
  1. CISORDINOL [Suspect]
     Active Substance: ZUCLOPENTHIXOL
     Indication: SCHIZOPHRENIA
     Dosage: STRENGTH: UNKNOWN.?DOSAGE: UNKNOWN.
  2. CIPRALEX [Concomitant]
     Active Substance: ESCITALOPRAM OXALATE
     Indication: PRODUCT USED FOR UNKNOWN INDICATION
     Dosage: DOSAGE: UNKNOWN.
  3. ZELDOX [Concomitant]
     Active Substance: ZIPRASIDONE
     Indication: SCHIZOPHRENIA
     Dosage: STRENGTH: UNKNOWN?DOSAGE: 40 + 0 + 80 MG.
  4. RISPERIDONE. [Suspect]
     Active Substance: RISPERIDONE
     Indication: SCHIZOPHRENIA
     Dosage: STRENGTH: UNKNOWN.?DOSAGE: VARYING.
     Dates: end: 20181205
  5. SEROQUEL [Suspect]
     Active Substance: QUETIAPINE FUMARATE
     Indication: SCHIZOPHRENIA
     Dosage: STRENGTH: UNKNOWN.?DOSAGE: UNKNOWN.
  6. ZOLPIDEM [Concomitant]
     Active Substance: ZOLPIDEM TARTRATE
     Indication: PRODUCT USED FOR UNKNOWN INDICATION
     Dosage: STRENGTH: UNKNOWN, 40 MG
  7. TRILAFON [Concomitant]
     Active Substance: PERPHENAZINE
     Indication: SCHIZOPHRENIA
     Dosage: STRENGTH: UNKNOWN.?DOSAGE: VARYING.
  8. INVEGA [Concomitant]
     Active Substance: PALIPERIDONE
     Indication: SCHIZOPHRENIA
     Dosage: DOSAGE: UNKNOWN.
     Route: 048
  9. FLUANXOL [Concomitant]
     Active Substance: FLUPENTIXOL
     Indication: SCHIZOPHRENIA
     Dosage: 20 MG
     Dates: end: 2018
  10. ZYPREXA [Suspect]
     Active Substance: OLANZAPINE
     Indication: SCHIZOPHRENIA
     Dosage: STRENGTH: UNKNOWN.?DOSAGE: UNKNOWN.
  11. RIVOTRIL [Concomitant]
     Active Substance: CLONAZEPAM
     Indication: PRODUCT USED FOR UNKNOWN INDICATION
     Dosage: STRENGTH: UNKNOWN.?DOSAGE: VARYING.
  12. DIAZEPAM. [Concomitant]
     Active Substance: DIAZEPAM
     Indication: PRODUCT USED FOR UNKNOWN INDICATION
     Dosage: STRENGTH: UNKNOWN.?DOSAGE: UNKNOWN.
     Dates: end: 20181205
  13. STILNOCT [Concomitant]
     Active Substance: ZOLPIDEM TARTRATE
     Indication: PRODUCT USED FOR UNKNOWN INDICATION
     Dosage: DOSAGE: UNKNOWN.
     Route: 048
  14. NOZINAN [Concomitant]
     Active Substance: LEVOMEPROMAZINE
     Indication: SCHIZOPHRENIA
     Dosage: 50 MG AS NEEDED, MAX 3XDGL.

REACTIONS (22)
  - Nausea [Unknown]
  - Anger [Unknown]
  - Inferiority complex [Unknown]
  - Hallucination, auditory [Unknown]
  - Paralysis [Unknown]
  - Acrophobia [Unknown]
  - Hunger [Unknown]
  - Delusion [Unknown]
  - Malaise [Unknown]
  - Anxiety [Unknown]
  - Persistent depressive disorder [Unknown]
  - Vomiting [Unknown]
  - Fatigue [Unknown]
  - Stress [Unknown]
  - Nightmare [Unknown]
  - Drug dependence [Unknown]
  - Head discomfort [Unknown]
  - Mental disorder [Unknown]
  - Alcohol intolerance [Unknown]
  - Somnolence [Unknown]
  - Akathisia [Unknown]
  - Sexual dysfunction [Unknown]

NARRATIVE: CASE EVENT DATE: 2009
